FAERS Safety Report 25771497 (Version 1)
Quarter: 2025Q3

REPORT INFORMATION
  Report Type: Spontaneous
  Country: US (occurrence: US)
  Receive Date: 20250908
  Receipt Date: 20250908
  Transmission Date: 20251021
  Serious: No
  Sender: DOMPE FARMACEUTICI
  Company Number: US-FARMAPROD-202504-1365

PATIENT
  Age: 61 Year
  Sex: Female

DRUGS (12)
  1. OXERVATE [Suspect]
     Active Substance: CENEGERMIN-BKBJ
     Indication: Neurotrophic keratopathy
     Route: 047
     Dates: start: 20250418
  2. OXERVATE [Suspect]
     Active Substance: CENEGERMIN-BKBJ
  3. IBUPROFEN [Concomitant]
     Active Substance: IBUPROFEN
  4. ACETAMINOPHEN [Concomitant]
     Active Substance: ACETAMINOPHEN
  5. PROTONIX [Concomitant]
     Active Substance: PANTOPRAZOLE SODIUM
  6. VITAMIN D-400 [Concomitant]
  7. CELEBREX [Concomitant]
     Active Substance: CELECOXIB
  8. ARTIFICIAL TEARS [Concomitant]
  9. MURO-128 [Concomitant]
  10. PREDNISOLONE ACETATE [Concomitant]
     Active Substance: PREDNISOLONE ACETATE
  11. XIIDRA [Concomitant]
     Active Substance: LIFITEGRAST
  12. MIEBO [Concomitant]
     Active Substance: PERFLUOROHEXYLOCTANE

REACTIONS (9)
  - Urticaria [Recovering/Resolving]
  - Pruritus [Recovering/Resolving]
  - Rash [Recovering/Resolving]
  - Product administration error [Unknown]
  - Vision blurred [Not Recovered/Not Resolved]
  - Corneal deposits [Unknown]
  - Product dose omission issue [Unknown]
  - Eye pain [Unknown]
  - Eyelid pain [Unknown]

NARRATIVE: CASE EVENT DATE: 20250422
